FAERS Safety Report 15365255 (Version 1)
Quarter: 2018Q3

REPORT INFORMATION
  Report Type: Spontaneous
  Country: US (occurrence: US)
  Receive Date: 20180831
  Receipt Date: 20180831
  Transmission Date: 20181010
  Serious: Yes (Life-Threatening, Other)
  Sender: FDA-Public Use
  Company Number: None

PATIENT
  Age: 63 Year
  Sex: Female
  Weight: 91.35 kg

DRUGS (5)
  1. ANASTRIZOLE [Concomitant]
  2. COREG [Concomitant]
     Active Substance: CARVEDILOL
  3. ZOCOR [Concomitant]
     Active Substance: SIMVASTATIN
  4. METFORMIN [Concomitant]
     Active Substance: METFORMIN HYDROCHLORIDE
  5. TRINTELLIX [Suspect]
     Active Substance: VORTIOXETINE HYDROBROMIDE
     Indication: MAJOR DEPRESSION
     Dosage: ?          QUANTITY:30 DF DOSAGE FORM;?
     Route: 048
     Dates: start: 20180823, end: 20180823

REACTIONS (9)
  - Palpitations [None]
  - Formication [None]
  - Vomiting [None]
  - Dyspnoea [None]
  - Nausea [None]
  - Pyrexia [None]
  - Hot flush [None]
  - Hyperhidrosis [None]
  - Panic attack [None]

NARRATIVE: CASE EVENT DATE: 20180823
